FAERS Safety Report 10210087 (Version 1)
Quarter: 2014Q2

REPORT INFORMATION
  Report Type: Spontaneous
  Country: GB (occurrence: None)
  Receive Date: 20140528
  Receipt Date: 20140528
  Transmission Date: 20141212
  Serious: Yes (Other)
  Sender: FDA-Public Use
  Company Number: AUR-APL-2014-06036

PATIENT
  Age: 23 Year
  Sex: Female
  Weight: 64.5 kg

DRUGS (6)
  1. CLARITHROMYCIN (CLARITHROMYCIN) [Suspect]
     Indication: SINUSITIS
     Route: 048
     Dates: start: 20140512, end: 20140514
  2. AMOXICILLIN (AMOXICILLIN) [Concomitant]
  3. CALCIUM (CALCIUM ) [Concomitant]
  4. FEXOFENADINE HYDROCHLORIDE [Concomitant]
  5. NASONEX (MOMETASONE FUROATE) [Concomitant]
  6. YASMIN (DROSPIRENONE W \ETHINYL ESTRADIOL) [Concomitant]

REACTIONS (5)
  - Anxiety [None]
  - Psychomotor hyperactivity [None]
  - Hyperhidrosis [None]
  - Insomnia [None]
  - Tremor [None]
